FAERS Safety Report 6432748-1 (Version None)
Quarter: 2009Q4

REPORT INFORMATION
  Report Type: 
  Country: None (occurrence: None)
  Receive Date: 20091109
  Receipt Date: 20091030
  Transmission Date: 20100525
  Serious: No
  Sender: FDA-Public Use
  Company Number: US-B.I. PHARMACEUTICALS,INC./RIDGEFIELD-2008-BP-04436BP

PATIENT
  Sex: Female

DRUGS (7)
  1. SPIRIVA [Suspect]
     Indication: EMPHYSEMA
     Dosage: 18 MCG
  2. SPIRIVA [Suspect]
     Indication: DYSPNOEA
  3. ADVAIR DISKUS 100/50 [Suspect]
  4. PRILOSEC [Concomitant]
  5. VERAPAMIL [Concomitant]
  6. AVAPRO [Concomitant]
  7. PAROXETINE HCL [Concomitant]

REACTIONS (7)
  - DEPRESSION [None]
  - DRY MOUTH [None]
  - ORAL SURGERY [None]
  - TOOTH EXTRACTION [None]
  - TOOTH FRACTURE [None]
  - TOOTH LOSS [None]
  - TOOTH REPAIR [None]
